FAERS Safety Report 11030643 (Version 1)
Quarter: 2015Q2

REPORT INFORMATION
  Report Type: Spontaneous
  Country: US (occurrence: None)
  Receive Date: 20150414
  Receipt Date: 20150414
  Transmission Date: 20150821
  Serious: Yes (Hospitalization)
  Sender: FDA-Public Use
  Company Number: None

PATIENT
  Age: 79 Year
  Sex: Female
  Weight: 22.82 kg

DRUGS (15)
  1. OFATUMUMAB [Suspect]
     Active Substance: OFATUMUMAB
     Indication: CHROMOSOMAL DELETION
     Dosage: 1000MCG IV MONTHLY
     Route: 042
     Dates: start: 20140106, end: 20150317
  2. ALEMTUZUMAB [Suspect]
     Active Substance: ALEMTUZUMAB
     Indication: CHROMOSOMAL DELETION
     Route: 058
     Dates: start: 20130905, end: 20150219
  3. SULFAMETHOXAZOLE-TRIMETHOPRIM (SMZ) [Concomitant]
     Active Substance: SULFAMETHOXAZOLE\TRIMETHOPRIM
  4. ALEMTUZUMAB [Suspect]
     Active Substance: ALEMTUZUMAB
     Indication: CHRONIC LYMPHOCYTIC LEUKAEMIA
     Route: 058
     Dates: start: 20130905, end: 20150219
  5. ATORVASTATIN [Concomitant]
     Active Substance: ATORVASTATIN
  6. MULTIVITAMIN WITH MINERALS [Concomitant]
     Active Substance: MINERALS\VITAMINS
  7. CALCIUM + VITAMIN D [Concomitant]
     Active Substance: CALCIUM\VITAMIN D
  8. OFATUMUMAB [Suspect]
     Active Substance: OFATUMUMAB
     Indication: CHRONIC LYMPHOCYTIC LEUKAEMIA
     Dosage: 1000MCG IV MONTHLY
     Route: 042
     Dates: start: 20140106, end: 20150317
  9. SODIUM CHLORIDE NASAL [Concomitant]
  10. VALGANCYCLOVIR [Concomitant]
     Active Substance: VALGANCICLOVIR
  11. FAMOTIDINE. [Concomitant]
     Active Substance: FAMOTIDINE
  12. FOLIC ACID. [Concomitant]
     Active Substance: FOLIC ACID
  13. HYDROCORTISONE TOPICAL [Concomitant]
  14. OXYMETAZOLINE NASAL SPRAY [Concomitant]
     Active Substance: OXYMETAZOLINE
  15. ACETAMINOPHEN. [Concomitant]
     Active Substance: ACETAMINOPHEN

REACTIONS (7)
  - Bronchiolitis [None]
  - Dyspnoea [None]
  - Malaise [None]
  - Lung infection [None]
  - Febrile neutropenia [None]
  - No therapeutic response [None]
  - Oedema [None]

NARRATIVE: CASE EVENT DATE: 20150331
